FAERS Safety Report 18186663 (Version 1)
Quarter: 2020Q3

REPORT INFORMATION
  Report Type: Spontaneous
  Country: US (occurrence: US)
  Receive Date: 20200821
  Receipt Date: 20200821
  Transmission Date: 20201103
  Serious: Yes (Other)
  Sender: FDA-Public Use
  Company Number: None

PATIENT
  Age: 63 Year
  Sex: Female
  Weight: 67.13 kg

DRUGS (7)
  1. CITALOPRAM [Concomitant]
     Active Substance: CITALOPRAM HYDROBROMIDE
  2. TRAZODONE [Concomitant]
     Active Substance: TRAZODONE HYDROCHLORIDE
  3. TRAZODONE MFG APOTEX [Suspect]
     Active Substance: TRAZODONE HYDROCHLORIDE
     Indication: DEPRESSION
     Dosage: ?          QUANTITY:50 MG MILLIGRAM(S);OTHER FREQUENCY:BEDTIME ;?
     Route: 048
     Dates: start: 20200715, end: 20200721
  4. MULTI VITAMIN [Concomitant]
     Active Substance: VITAMINS
  5. ALLERCLEAR (LORATADINE) [Concomitant]
  6. TOPIRAMATE. [Concomitant]
     Active Substance: TOPIRAMATE
  7. SUMATRIPTAN. [Concomitant]
     Active Substance: SUMATRIPTAN

REACTIONS (3)
  - Drug ineffective [None]
  - Insomnia [None]
  - Product quality issue [None]

NARRATIVE: CASE EVENT DATE: 20200715
